FAERS Safety Report 9330964 (Version 3)
Quarter: 2014Q1

REPORT INFORMATION
  Report Type: Spontaneous
  Country: IT (occurrence: IT)
  Receive Date: 20130605
  Receipt Date: 20140112
  Transmission Date: 20141002
  Serious: No
  Sender: FDA-Public Use
  Company Number: IT-009507513-1306ITA000903

PATIENT
  Age: 42 Year
  Sex: Female

DRUGS (3)
  1. SYCREST [Suspect]
     Indication: BIPOLAR DISORDER
     Dosage: 5 MG, QD
     Route: 060
     Dates: start: 20120530, end: 20120613
  2. SYCREST [Suspect]
     Indication: MOOD SWINGS
  3. SERTRALINE HYDROCHLORIDE [Concomitant]
     Indication: DEPRESSION
     Dosage: 50 MG DAILY
     Route: 048
     Dates: start: 20120530

REACTIONS (4)
  - Vertigo [Recovered/Resolved]
  - Hypotension [Recovered/Resolved]
  - Hyperhidrosis [Unknown]
  - Off label use [Unknown]
